FAERS Safety Report 10185348 (Version 1)
Quarter: 2014Q2

REPORT INFORMATION
  Report Type: Spontaneous
  Country: FR (occurrence: FR)
  Receive Date: 20140521
  Receipt Date: 20140521
  Transmission Date: 20141212
  Serious: Yes (Hospitalization)
  Sender: FDA-Public Use
  Company Number: FR-SA-2014SA059464

PATIENT
  Age: 80 Year
  Sex: Male

DRUGS (19)
  1. COAPROVEL [Suspect]
     Indication: HYPERTENSION
     Dosage: FORM: COATED TABLET
     Route: 048
     Dates: end: 20140119
  2. ANAFRANIL [Suspect]
     Indication: DEPRESSION
     Route: 048
     Dates: start: 2014, end: 20140119
  3. BASDENE [Suspect]
     Indication: HYPERTHYROIDISM
     Route: 048
  4. EUCREAS [Suspect]
     Indication: TYPE 2 DIABETES MELLITUS
     Dosage: FORM: COATED TABLET
     Route: 048
     Dates: end: 20140119
  5. RISPERDAL [Suspect]
     Indication: PRODUCT USED FOR UNKNOWN INDICATION
     Dosage: FORM: COATED TABLET
     Route: 048
     Dates: start: 20140111, end: 20140119
  6. NEO MERCAZOLE [Concomitant]
     Indication: HYPERTHYROIDISM
     Route: 048
     Dates: start: 20130903
  7. NORSET [Concomitant]
     Indication: DEPRESSION
     Route: 048
     Dates: start: 20140111, end: 20140119
  8. SERESTA [Concomitant]
     Route: 048
     Dates: start: 20140119
  9. LASILIX [Concomitant]
     Route: 048
     Dates: start: 20140119, end: 20140122
  10. APIDRA [Concomitant]
     Indication: INSULIN-REQUIRING TYPE 2 DIABETES MELLITUS
     Dosage: 14 IU IN THE MORNING, 16 IU NOON , 8 IU NIGHT
     Route: 058
     Dates: start: 20130903
  11. LANTUS [Concomitant]
     Indication: INSULIN-REQUIRING TYPE 2 DIABETES MELLITUS
     Route: 058
  12. PARACETAMOL [Concomitant]
     Route: 048
  13. AMLOR [Concomitant]
     Indication: HYPERTENSION
     Route: 048
  14. EUPRESSYL [Concomitant]
     Indication: HYPERTENSION
     Route: 048
     Dates: start: 20140130
  15. INEXIUM [Concomitant]
     Route: 048
  16. CEFOTAXIME [Concomitant]
  17. OFLOXACIN [Concomitant]
  18. SOLUTIONS AFFECTING THE ELECTROLYTE BALANCE [Concomitant]
     Dosage: 1000ML/24H
  19. CALCIPARINE [Concomitant]
     Dosage: 0.2 ML 2 INJECTIONS SC IN 24H

REACTIONS (5)
  - Lactic acidosis [Recovered/Resolved]
  - Renal failure acute [Recovered/Resolved]
  - Blood creatinine increased [Recovered/Resolved]
  - Blood chloride decreased [Recovered/Resolved]
  - Hyperkalaemia [Recovered/Resolved]
